FAERS Safety Report 21997506 (Version 1)
Quarter: 2023Q1

REPORT INFORMATION
  Report Type: Spontaneous
  Country: US (occurrence: US)
  Receive Date: 20230216
  Receipt Date: 20230216
  Transmission Date: 20230418
  Serious: Yes (Hospitalization)
  Sender: FDA-Public Use
  Company Number: US-TEVA-2023-US-2854711

PATIENT
  Age: 43 Year
  Sex: Male

DRUGS (1)
  1. FENTANYL [Suspect]
     Active Substance: FENTANYL
     Indication: Overdose
     Route: 048

REACTIONS (6)
  - Hyperthermia [Recovered/Resolved]
  - Depressed level of consciousness [Recovered/Resolved]
  - Dehydration [Recovered/Resolved]
  - Renal impairment [Recovered/Resolved]
  - Drug use disorder [Recovered/Resolved]
  - Overdose [Unknown]
